FAERS Safety Report 16482669 (Version 1)
Quarter: 2019Q2

REPORT INFORMATION
  Report Type: Spontaneous
  Country: FR (occurrence: FR)
  Receive Date: 20190627
  Receipt Date: 20190627
  Transmission Date: 20190711
  Serious: Yes (Hospitalization)
  Sender: FDA-Public Use
  Company Number: FR-ACCORD-135221

PATIENT
  Age: 63 Year
  Sex: Female
  Weight: 66 kg

DRUGS (3)
  1. FLUOROURACIL ACCORD [Suspect]
     Active Substance: FLUOROURACIL
     Indication: BRONCHIAL CARCINOMA
     Dosage: STRENGTH:50 MG / ML, 700 MG IN BOLUS, THEN 4100 MG IN IV INFUSION CONTINUES (CANCELED)
     Route: 040
     Dates: start: 20190318, end: 20190318
  2. OXALIPLATIN ACCORD [Suspect]
     Active Substance: OXALIPLATIN
     Indication: BRONCHIAL CARCINOMA
     Dosage: STRENGTH: 5 MG / ML
     Route: 042
     Dates: start: 20190318, end: 20190318
  3. FOLINIC ACID [Suspect]
     Active Substance: LEUCOVORIN
     Indication: BRONCHIAL CARCINOMA
     Route: 042
     Dates: start: 20190318, end: 20190318

REACTIONS (5)
  - Paraesthesia [Recovered/Resolved]
  - Bronchospasm [Recovered/Resolved]
  - Off label use [Unknown]
  - Dyspnoea [Recovered/Resolved]
  - Paraesthesia oral [Recovered/Resolved]

NARRATIVE: CASE EVENT DATE: 20190319
